FAERS Safety Report 12213448 (Version 1)
Quarter: 2016Q1

REPORT INFORMATION
  Report Type: Spontaneous
  Country: US (occurrence: None)
  Receive Date: 20160325
  Receipt Date: 20160325
  Transmission Date: 20160526
  Serious: Yes (Hospitalization)
  Sender: FDA-Public Use
  Company Number: None

PATIENT
  Sex: Female
  Weight: 64 kg

DRUGS (6)
  1. MULTIVITAMIN [Concomitant]
     Active Substance: VITAMINS
  2. LAMOTRIGINE. [Concomitant]
     Active Substance: LAMOTRIGINE
  3. NADOLOL. [Concomitant]
     Active Substance: NADOLOL
  4. THIAMINE. [Concomitant]
     Active Substance: THIAMINE
  5. HARVONI [Suspect]
     Active Substance: LEDIPASVIR\SOFOSBUVIR
     Indication: HEPATITIS C
     Dosage: 90/400 MG X1/DAY PO
     Route: 048
     Dates: start: 20150804, end: 20160125
  6. CICLOPIROX. [Concomitant]
     Active Substance: CICLOPIROX

REACTIONS (4)
  - Hypertension [None]
  - Upper gastrointestinal haemorrhage [None]
  - Gastric disorder [None]
  - Dizziness [None]

NARRATIVE: CASE EVENT DATE: 20151111
